FAERS Safety Report 7632916-7 (Version None)
Quarter: 2011Q3

REPORT INFORMATION
  Report Type: 
  Country: None (occurrence: None)
  Receive Date: 20110725
  Receipt Date: 20110719
  Transmission Date: 20111222
  Serious: Yes (Other)
  Sender: FDA-Public Use
  Company Number: US-SANOFI-AVENTIS-2011SA046207

PATIENT
  Age: 63 Year
  Sex: Female

DRUGS (3)
  1. MULTAQ [Suspect]
     Route: 048
  2. MULTAQ [Suspect]
     Route: 048
  3. MULTAQ [Suspect]
     Route: 048

REACTIONS (3)
  - UNDERDOSE [None]
  - ATRIAL FIBRILLATION [None]
  - PHOTOSENSITIVITY REACTION [None]
